FAERS Safety Report 7642197-6 (Version None)
Quarter: 2011Q3

REPORT INFORMATION
  Report Type: 
  Country: None (occurrence: None)
  Receive Date: 20110728
  Receipt Date: 20110725
  Transmission Date: 20111222
  Serious: Yes (Other)
  Sender: FDA-Public Use
  Company Number: US-PFIZER INC-2009191479

PATIENT
  Sex: Male
  Weight: 74.8 kg

DRUGS (2)
  1. TIKOSYN [Suspect]
     Indication: VENTRICULAR FIBRILLATION
     Dosage: 0.5 MG, 2X/DAY
     Dates: start: 20070727
  2. TIKOSYN [Suspect]
     Indication: CARDIAC PACEMAKER REPLACEMENT
     Dosage: 0.5 MG, 2X/DAY
     Route: 048
     Dates: start: 20070627

REACTIONS (3)
  - DRUG INEFFECTIVE [None]
  - BLOOD CREATININE INCREASED [None]
  - RENAL FAILURE [None]
